FAERS Safety Report 8036395-X (Version None)
Quarter: 2012Q1

REPORT INFORMATION
  Report Type: 
  Country: None (occurrence: None)
  Receive Date: 20120111
  Receipt Date: 20120110
  Transmission Date: 20120608
  Serious: Yes (Death)
  Sender: FDA-Public Use
  Company Number: PHHY2012NL001971

PATIENT
  Sex: Female

DRUGS (3)
  1. ZOMETA [Suspect]
     Indication: BREAST CANCER METASTATIC
     Dosage: 4 MG/100 ML, 1X PER 28 DAYS
     Route: 042
     Dates: start: 20090311
  2. ZOMETA [Suspect]
     Dosage: 4 MG/100 ML, 1X PER 28 DAYS
     Route: 042
     Dates: start: 20111117
  3. ZOMETA [Suspect]
     Dosage: 4 MG/100 ML, 1X PER 28 DAYS
     Route: 042
     Dates: start: 20111213

REACTIONS (1)
  - DEATH [None]
